FAERS Safety Report 11177214 (Version 1)
Quarter: 2015Q2

REPORT INFORMATION
  Report Type: Spontaneous
  Country: US (occurrence: US)
  Receive Date: 20150610
  Receipt Date: 20150610
  Transmission Date: 20150821
  Serious: Yes (Hospitalization, Other)
  Sender: FDA-Public Use
  Company Number: US-TEVA-567806USA

PATIENT
  Age: 24 Year
  Sex: Female

DRUGS (3)
  1. CODEINE [Concomitant]
     Active Substance: CODEINE
     Route: 065
  2. LAMOTRIGINE. [Suspect]
     Active Substance: LAMOTRIGINE
     Indication: INTENTIONAL OVERDOSE
     Route: 048
  3. ARIPIPRAZOLE. [Interacting]
     Active Substance: ARIPIPRAZOLE
     Indication: INTENTIONAL OVERDOSE
     Route: 048

REACTIONS (3)
  - Drug interaction [Recovered/Resolved]
  - Serotonin syndrome [Recovered/Resolved]
  - Intentional overdose [Recovered/Resolved]
